FAERS Safety Report 10621482 (Version 1)
Quarter: 2014Q4

REPORT INFORMATION
  Report Type: Spontaneous
  Country: US (occurrence: None)
  Receive Date: 20141126
  Receipt Date: 20141126
  Transmission Date: 20150529
  Serious: Yes (Hospitalization)
  Sender: FDA-Public Use
  Company Number: US-001360N

PATIENT
  Age: 58 Year
  Sex: Female

DRUGS (18)
  1. GABAPENTIN. [Concomitant]
     Active Substance: GABAPENTIN
  2. CIPROFLOXACIN. [Concomitant]
     Active Substance: CIPROFLOXACIN
  3. PRENATAL VITAMINS /02014401/ [Concomitant]
     Active Substance: VITAMINS
  4. ROBINUL [Concomitant]
     Active Substance: GLYCOPYRROLATE
  5. VITAMIN D3 [Concomitant]
     Active Substance: CHOLECALCIFEROL
  6. AQUADEKS [Concomitant]
  7. SOLUTIONS FOR PARENTERAL NUTRITION [Concomitant]
     Active Substance: AMINO ACIDS\DEXTROSE\ELECTROLYTES NOS
  8. GATTEX [Suspect]
     Active Substance: TEDUGLUTIDE\WATER
     Indication: SHORT-BOWEL SYNDROME
     Dosage: DF
     Route: 058
     Dates: end: 20141013
  9. PROTONIX [Concomitant]
     Active Substance: PANTOPRAZOLE SODIUM
  10. EFFEXOR [Concomitant]
     Active Substance: VENLAFAXINE HYDROCHLORIDE
  11. FOLIC ACID. [Concomitant]
     Active Substance: FOLIC ACID
  12. RELISTOR [Concomitant]
     Active Substance: METHYLNALTREXONE BROMIDE
  13. BONIVA [Concomitant]
     Active Substance: IBANDRONATE SODIUM
  14. FLAGYL [Concomitant]
     Active Substance: METRONIDAZOLE\METRONIDAZOLE HYDROCHLORIDE
  15. VITAMIN B12 [Concomitant]
     Active Substance: CYANOCOBALAMIN
  16. OXYCODONE [Concomitant]
     Active Substance: OXYCODONE
  17. CODEINE SULFATE. [Concomitant]
     Active Substance: CODEINE SULFATE
  18. DILAUDID [Concomitant]
     Active Substance: HYDROMORPHONE HYDROCHLORIDE

REACTIONS (6)
  - Adhesion [None]
  - Vomiting [None]
  - Abdominal pain [None]
  - Pancreatitis [None]
  - Cholecystitis [None]
  - Gallbladder disorder [None]

NARRATIVE: CASE EVENT DATE: 201410
